FAERS Safety Report 8397969-X (Version None)
Quarter: 2012Q2

REPORT INFORMATION
  Report Type: 
  Country: None (occurrence: None)
  Receive Date: 20120531
  Receipt Date: 20120523
  Transmission Date: 20120825
  Serious: Yes (Hospitalization, Disabling, Other)
  Sender: FDA-Public Use
  Company Number: US-JNJFOC-20120501018

PATIENT
  Sex: Female
  Weight: 70.76 kg

DRUGS (3)
  1. ARGATROBAN [Concomitant]
  2. ASPIRIN [Suspect]
     Indication: ILL-DEFINED DISORDER
  3. XARELTO [Suspect]
     Indication: KNEE ARTHROPLASTY
     Route: 048
     Dates: start: 20120418, end: 20120426

REACTIONS (5)
  - ARTERIAL THROMBOSIS LIMB [None]
  - THROMBOCYTOPENIA [None]
  - VAGINAL HAEMORRHAGE [None]
  - HEPARIN-INDUCED THROMBOCYTOPENIA TEST POSITIVE [None]
  - URINARY TRACT INFECTION [None]
